FAERS Safety Report 5141256-X (Version None)
Quarter: 2006Q4

REPORT INFORMATION
  Report Type: 
  Country: None (occurrence: None)
  Receive Date: 20061101
  Receipt Date: 20061018
  Transmission Date: 20070319
  Serious: Yes (Hospitalization)
  Sender: FDA-Public Use
  Company Number: PHBS2006IT16340

PATIENT
  Age: 45 Year
  Sex: Female

DRUGS (1)
  1. ZOMETA [Suspect]
     Indication: METASTASES TO BONE
     Dosage: 4 MG, EVERY 1 MONTH
     Route: 042
     Dates: start: 20041001, end: 20060301

REACTIONS (2)
  - OSTEONECROSIS [None]
  - TOOTH DISORDER [None]
